FAERS Safety Report 22304764 (Version 1)
Quarter: 2023Q2

REPORT INFORMATION
  Report Type: Spontaneous
  Country: US (occurrence: None)
  Receive Date: 20230509
  Receipt Date: 20230509
  Transmission Date: 20230722
  Serious: Yes (Hospitalization)
  Sender: FDA-Public Use
  Company Number: None

PATIENT
  Age: 68 Year
  Sex: Female
  Weight: 85.7 kg

DRUGS (1)
  1. ZOLEDRONIC ACID [Suspect]
     Active Substance: ZOLEDRONIC ACID
     Dosage: 5 MG INTRAVENOUS
     Route: 042
     Dates: start: 20230509, end: 20230509

REACTIONS (9)
  - Chest discomfort [None]
  - Chest pain [None]
  - Hypoaesthesia oral [None]
  - Paraesthesia oral [None]
  - Hypoaesthesia [None]
  - Paraesthesia [None]
  - Dizziness [None]
  - Blood pressure abnormal [None]
  - Product quality issue [None]

NARRATIVE: CASE EVENT DATE: 20230509
